FAERS Safety Report 22393023 (Version 1)
Quarter: 2023Q2

REPORT INFORMATION
  Report Type: Spontaneous
  Country: JP (occurrence: JP)
  Receive Date: 20230601
  Receipt Date: 20230601
  Transmission Date: 20230722
  Serious: Yes (Hospitalization, Other)
  Sender: FDA-Public Use
  Company Number: JP-ASTELLAS-2022JP011845

PATIENT
  Age: 9 Year
  Sex: Female

DRUGS (5)
  1. PROGRAF [Suspect]
     Active Substance: TACROLIMUS
     Indication: Immunosuppressant drug therapy
     Dosage: UNK UNK, UNKNOWN FREQ.
     Route: 048
  2. CERTICAN [Concomitant]
     Active Substance: EVEROLIMUS
     Indication: Immunosuppressant drug therapy
     Dosage: UNK UNK, UNKNOWN FREQ.
     Route: 048
  3. PREDONINE [Concomitant]
     Active Substance: PREDNISOLONE
     Indication: Immunosuppressant drug therapy
     Dosage: UNK UNK, UNKNOWN FREQ.
     Route: 048
  4. SARS-CoV-2 vaccine [Concomitant]
     Indication: Prophylaxis
     Dosage: UNK UNK, UNKNOWN FREQ.
     Route: 065
  5. SARS-CoV-2 vaccine [Concomitant]
     Dosage: UNK UNK, UNKNOWN FREQ.
     Route: 065

REACTIONS (9)
  - Transplant rejection [Unknown]
  - Liver transplant rejection [Unknown]
  - Hepatic fibrosis [Unknown]
  - Liver transplant rejection [Recovering/Resolving]
  - Hepatic fibrosis [Recovering/Resolving]
  - Hepatic cirrhosis [Recovering/Resolving]
  - Cholangitis infective [Recovering/Resolving]
  - Cholestasis [Recovering/Resolving]
  - Small intestinal perforation [Recovering/Resolving]
